FAERS Safety Report 21916290 (Version 1)
Quarter: 2023Q1

REPORT INFORMATION
  Report Type: Spontaneous
  Country: FI (occurrence: FI)
  Receive Date: 20230126
  Receipt Date: 20230126
  Transmission Date: 20230418
  Serious: Yes (Hospitalization)
  Sender: FDA-Public Use
  Company Number: FI-MLMSERVICE-20220210-3369368-1

PATIENT
  Age: 60 Year
  Sex: Female

DRUGS (16)
  1. VENLAFAXINE HCL [Suspect]
     Active Substance: VENLAFAXINE HYDROCHLORIDE
     Indication: Mixed anxiety and depressive disorder
     Dosage: UNK
     Route: 065
     Dates: start: 2020
  2. DIAZEPAM [Suspect]
     Active Substance: DIAZEPAM
     Indication: Mixed anxiety and depressive disorder
     Dosage: 30 MILLIGRAM, Q8H
     Route: 065
     Dates: start: 202005
  3. DIAZEPAM [Suspect]
     Active Substance: DIAZEPAM
     Dosage: 50 MILLIGRAM, QD
     Route: 065
     Dates: start: 202005
  4. DIAZEPAM [Suspect]
     Active Substance: DIAZEPAM
     Dosage: 5 MILLIGRAM, Q3D,EVERY THREE DAYS
     Route: 065
     Dates: start: 202005
  5. OXAZEPAM [Suspect]
     Active Substance: OXAZEPAM
     Indication: Mixed anxiety and depressive disorder
     Dosage: 30 MG, QD,FOUR 30 MG TABLETS FIVE TIMES PER DAY
     Route: 065
  6. OXAZEPAM [Suspect]
     Active Substance: OXAZEPAM
     Dosage: 30 MILLIGRAM, QD
     Route: 065
  7. OXAZEPAM [Suspect]
     Active Substance: OXAZEPAM
     Dosage: 1800 MILLIGRAM, QD
     Route: 065
     Dates: start: 202005
  8. OXAZEPAM [Suspect]
     Active Substance: OXAZEPAM
     Dosage: 270 MILLIGRAM, QD
     Route: 065
  9. TRAZODONE [Concomitant]
     Active Substance: TRAZODONE HYDROCHLORIDE
     Indication: Insomnia
     Dosage: 50 MG, 1X/DAY
     Route: 065
     Dates: start: 2020
  10. ACETAMINOPHEN\CODEINE PHOSPHATE [Concomitant]
     Active Substance: ACETAMINOPHEN\CODEINE PHOSPHATE
     Indication: Headache
     Dosage: 3000MG OF ACETAMINOPHEN/ 180MG OF CODEINE
     Route: 065
  11. ACETAMINOPHEN\CODEINE PHOSPHATE [Concomitant]
     Active Substance: ACETAMINOPHEN\CODEINE PHOSPHATE
     Dosage: FREQ:8 H;2 TABLETS 3 TIMES A DAY
     Route: 065
  12. LEVETIRACETAM [Concomitant]
     Active Substance: LEVETIRACETAM
     Indication: Seizure prophylaxis
     Dosage: 500 MG, 1X/DAY
     Route: 065
  13. LEVETIRACETAM [Concomitant]
     Active Substance: LEVETIRACETAM
     Dosage: FREQ:12 H;
     Route: 065
  14. CLONIDINE [Concomitant]
     Active Substance: CLONIDINE
     Indication: Hypertension
     Dosage: FREQ:8 H;
     Route: 065
     Dates: start: 202005
  15. LEVOMEPROMAZINE [Concomitant]
     Active Substance: LEVOMEPROMAZINE
     Indication: Insomnia
     Dosage: 100 MILLIGRAM,DOSE INCREASED
     Route: 065
  16. LEVOMEPROMAZINE [Concomitant]
     Active Substance: LEVOMEPROMAZINE
     Dosage: 50 MILLIGRAM
     Route: 065
     Dates: start: 202005

REACTIONS (2)
  - Anxiety [Recovered/Resolved]
  - Withdrawal syndrome [Recovered/Resolved]
